FAERS Safety Report 7967148-6 (Version None)
Quarter: 2011Q4

REPORT INFORMATION
  Report Type: 
  Country: None (occurrence: None)
  Receive Date: 20111208
  Receipt Date: 20111208
  Transmission Date: 20120403
  Serious: Yes (Other)
  Sender: FDA-Public Use
  Company Number: None

PATIENT
  Sex: Male

DRUGS (1)
  1. TACROLIMUS 1MG. ASTELLAS [Suspect]
     Indication: IMMUNOSUPPRESSION
     Dosage: 5 MG. EVERY MORNING BY MOUTH : 4 MG EVERY NIGHT BY MOUTH
     Route: 048
     Dates: start: 20110701

REACTIONS (1)
  - ALOPECIA [None]
